FAERS Safety Report 5975000-0 (Version None)
Quarter: 2008Q4

REPORT INFORMATION
  Report Type: 
  Country: None (occurrence: None)
  Receive Date: 20081202
  Receipt Date: 20081120
  Transmission Date: 20090506
  Serious: Yes (Hospitalization, Other)
  Sender: FDA-Public Use
  Company Number: SE-JNJFOC-20080502414

PATIENT
  Age: 19 Year
  Sex: Male

DRUGS (10)
  1. REMICADE [Suspect]
     Dosage: AND STEROIDS
     Route: 042
  2. REMICADE [Suspect]
     Dosage: AND STEROIDS
     Route: 042
  3. REMICADE [Suspect]
     Route: 042
  4. REMICADE [Suspect]
     Dosage: DOSE 5 AFTER } 8 WEEKS INTERMISSION
     Route: 042
  5. REMICADE [Suspect]
     Dosage: WEEK 6
     Route: 042
  6. REMICADE [Suspect]
     Dosage: WEEK 2
     Route: 042
  7. REMICADE [Suspect]
     Indication: CROHN'S DISEASE
     Dosage: WEEK 0
     Route: 042
  8. PREDNISOLONE [Concomitant]
  9. ASACOL [Concomitant]
  10. OMEPRAZOLE [Concomitant]

REACTIONS (3)
  - CEREBRAL INFARCTION [None]
  - DRUG INEFFECTIVE [None]
  - HOSPITALISATION [None]
